FAERS Safety Report 15129494 (Version 2)
Quarter: 2025Q3

REPORT INFORMATION
  Report Type: Spontaneous
  Country: US (occurrence: US)
  Receive Date: 20180711
  Receipt Date: 20250801
  Transmission Date: 20251020
  Serious: Yes (Death)
  Sender: QILU PHARMACEUTICAL
  Company Number: None

PATIENT
  Age: 68 Year
  Sex: Male

DRUGS (5)
  1. OLANZAPINE [Suspect]
     Active Substance: OLANZAPINE
     Indication: Product used for unknown indication
     Dosage: 10 MG, DAILY
     Route: 048
  2. DIVALPROEX SODIUM [Suspect]
     Active Substance: DIVALPROEX SODIUM
     Indication: Product used for unknown indication
     Dosage: 1250 MG, DAILY
     Route: 065
  3. PALIPERIDONE [Suspect]
     Active Substance: PALIPERIDONE
     Indication: Product used for unknown indication
     Route: 030
  4. PALIPERIDONE [Suspect]
     Active Substance: PALIPERIDONE
     Route: 030
  5. BENZTROPINE [Concomitant]
     Active Substance: BENZTROPINE
     Dosage: 0.5 MG PER DAY
     Route: 048

REACTIONS (10)
  - Parkinsonism [Fatal]
  - Dysphonia [Unknown]
  - Salivary hypersecretion [Unknown]
  - Reduced facial expression [Unknown]
  - Cogwheel rigidity [Unknown]
  - Hypokinesia [Unknown]
  - Sedation [Unknown]
  - Slow speech [Unknown]
  - Gait disturbance [Unknown]
  - Cognitive disorder [Unknown]
